FAERS Safety Report 12187341 (Version 1)
Quarter: 2016Q1

REPORT INFORMATION
  Report Type: Spontaneous
  Country: US (occurrence: None)
  Receive Date: 20160316
  Receipt Date: 20160316
  Transmission Date: 20160526
  Serious: Yes (Life-Threatening, Hospitalization, Disabling, Other)
  Sender: FDA-Public Use
  Company Number: None

PATIENT
  Age: 85 Year
  Sex: Female
  Weight: 48.99 kg

DRUGS (9)
  1. PROLIA [Suspect]
     Active Substance: DENOSUMAB
     Indication: OSTEOPOROSIS
     Dosage: SHOT ONE SHOT --
     Dates: start: 20160114
  2. MELATONIN [Concomitant]
     Active Substance: MELATONIN
  3. AMLODIPINE [Concomitant]
     Active Substance: AMLODIPINE BESYLATE
  4. ONDANSETRON [Concomitant]
     Active Substance: ONDANSETRON
  5. COUMADIN [Concomitant]
     Active Substance: WARFARIN SODIUM
  6. LASIX [Concomitant]
     Active Substance: FUROSEMIDE
  7. LORAZEPAM. [Concomitant]
     Active Substance: LORAZEPAM
  8. AMIODARONE [Concomitant]
     Active Substance: AMIODARONE
  9. TYLENOL [Concomitant]
     Active Substance: ACETAMINOPHEN

REACTIONS (2)
  - Muscle spasms [None]
  - Arthralgia [None]

NARRATIVE: CASE EVENT DATE: 20160119
